FAERS Safety Report 21843465 (Version 1)
Quarter: 2023Q1

REPORT INFORMATION
  Report Type: Spontaneous
  Country: GB (occurrence: GB)
  Receive Date: 20230110
  Receipt Date: 20230110
  Transmission Date: 20230418
  Serious: Yes (Other)
  Sender: FDA-Public Use
  Company Number: None

PATIENT
  Age: 65 Year

DRUGS (23)
  1. DULOXETINE [Suspect]
     Active Substance: DULOXETINE
     Indication: Radiculopathy
     Dates: start: 20221202
  2. AMLODIPINE [Suspect]
     Active Substance: AMLODIPINE BESYLATE
     Indication: Radiculopathy
     Dosage: AMLODIPINE TAB 10MG ON
  3. ATORVASTATIN [Suspect]
     Active Substance: ATORVASTATIN
     Indication: Radiculopathy
     Dosage: ATORVASTATIN TAB 20MG ON
  4. OMEPRAZOLE [Suspect]
     Active Substance: OMEPRAZOLE
     Indication: Product used for unknown indication
  5. WARFARIN [Suspect]
     Active Substance: WARFARIN
     Indication: Atrial fibrillation
     Dosage: MON+TUES 6MG; SAT+SUN 5MG
     Dates: start: 20221214
  6. WARFARIN [Suspect]
     Active Substance: WARFARIN
  7. WARFARIN [Suspect]
     Active Substance: WARFARIN
  8. BISOPROLOL [Suspect]
     Active Substance: BISOPROLOL
     Indication: Radiculopathy
     Dosage: BISOPROLOL TAB 2.5MG OM
  9. ACETAMINOPHEN [Suspect]
     Active Substance: ACETAMINOPHEN
     Indication: Radiculopathy
  10. AMITRIPTYLINE [Suspect]
     Active Substance: AMITRIPTYLINE
     Indication: Radiculopathy
     Dosage: AMITRIPTYLINE TAB 20MG ON - GP INSTRUCTIONS ARE 30MG ON
  11. AMITRIPTYLINE [Suspect]
     Active Substance: AMITRIPTYLINE
     Dosage: DOSE INCREASED FOR SCIATICA PAIN, NOW REDUCED BACK TO 20MG ON
  12. IBUPROFEN [Suspect]
     Active Substance: IBUPROFEN
     Indication: Analgesic therapy
     Dosage: APPLY TDS
  13. IBUPROFEN [Suspect]
     Active Substance: IBUPROFEN
  14. CODEINE [Suspect]
     Active Substance: CODEINE
     Indication: Product used for unknown indication
  15. FLUCLOXACILLIN [Suspect]
     Active Substance: FLUCLOXACILLIN
     Indication: Product used for unknown indication
     Dosage: FOR 7/7 - COURSE COMPLETED
     Dates: start: 20221014
  16. NAPROXEN [Suspect]
     Active Substance: NAPROXEN
     Indication: Product used for unknown indication
  17. VITAMINS [Concomitant]
     Active Substance: VITAMINS
     Indication: Circulatory collapse
  18. ASCORBIC ACID [Concomitant]
     Active Substance: ASCORBIC ACID
  19. Vitamins D [Concomitant]
     Indication: Circulatory collapse
  20. Vitamins B complex [Concomitant]
     Indication: Circulatory collapse
  21. Omega3 [Concomitant]
     Indication: Circulatory collapse
  22. GARLIC [Concomitant]
     Active Substance: GARLIC
     Indication: Circulatory collapse
  23. MAGNESIUM [Concomitant]
     Active Substance: MAGNESIUM
     Indication: Circulatory collapse

REACTIONS (2)
  - Gastrointestinal haemorrhage [Recovered/Resolved]
  - International normalised ratio increased [Recovered/Resolved]
